FAERS Safety Report 18577228 (Version 1)
Quarter: 2020Q4

REPORT INFORMATION
  Report Type: Spontaneous
  Country: IN (occurrence: IN)
  Receive Date: 20201203
  Receipt Date: 20201203
  Transmission Date: 20210114
  Serious: Yes (Hospitalization)
  Sender: FDA-Public Use
  Company Number: IN-PRAGMA-2020-IN-000202

PATIENT
  Age: 34 Year
  Sex: Female

DRUGS (1)
  1. CEPHALEXIN (NON-SPECIFIC) [Suspect]
     Active Substance: CEPHALEXIN
     Indication: UPPER RESPIRATORY TRACT INFECTION
     Dosage: 500 MG TWICE DAILY
     Route: 048

REACTIONS (2)
  - Familial periodic paralysis [Recovered/Resolved]
  - Tubulointerstitial nephritis [Recovered/Resolved]
